FAERS Safety Report 5017057-X (Version None)
Quarter: 2006Q2

REPORT INFORMATION
  Report Type: 
  Country: None (occurrence: None)
  Receive Date: 20060526
  Receipt Date: 20060515
  Transmission Date: 20061013
  Serious: Yes (Death)
  Sender: FDA-Public Use
  Company Number: CLOF-10236

PATIENT
  Age: 22 Year
  Sex: Male

DRUGS (15)
  1. CLOLAR [Suspect]
     Indication: ACUTE LYMPHOCYTIC LEUKAEMIA
     Dosage: 63 MG QD X 3 IV
     Route: 042
     Dates: start: 20060322
  2. CYCLOPHOSPHAMIDE [Suspect]
     Indication: ACUTE LYMPHOCYTIC LEUKAEMIA
     Dosage: 314 MG Q12HR IV
     Route: 042
     Dates: start: 20060322
  3. AVELOX [Concomitant]
  4. VALTREX [Concomitant]
  5. AMBISOME [Concomitant]
  6. DILANTIN [Concomitant]
  7. ENALAPRIL [Concomitant]
  8. LASIX [Concomitant]
  9. PEPCID [Concomitant]
  10. DARVON [Concomitant]
  11. COMPAZINE [Concomitant]
  12. K-DUR 10 [Concomitant]
  13. DOXORUBICIN HCL [Concomitant]
  14. MEXIFLOXACIN [Concomitant]
  15. MULTI-VITAMIN [Concomitant]

REACTIONS (5)
  - ABDOMINAL DISTENSION [None]
  - DIARRHOEA [None]
  - DYSPNOEA [None]
  - OEDEMA PERIPHERAL [None]
  - WEIGHT INCREASED [None]
